FAERS Safety Report 5930484-9 (Version None)
Quarter: 2008Q4

REPORT INFORMATION
  Report Type: 
  Country: None (occurrence: None)
  Receive Date: 20081026
  Receipt Date: 20081008
  Transmission Date: 20090506
  Serious: Yes (Other)
  Sender: FDA-Public Use
  Company Number: PHHY2008DE19833

PATIENT
  Sex: Male

DRUGS (2)
  1. ZOMETA [Suspect]
     Indication: METASTASES TO BONE
     Dosage: 4 MG EVERY 4 WEEKS
     Route: 042
     Dates: start: 20080703, end: 20080718
  2. TRENANTONE [Concomitant]
     Indication: PROSTATE CANCER
     Dosage: 1 EVERY 3 MONTH
     Dates: start: 20060703

REACTIONS (2)
  - GINGIVAL ULCERATION [None]
  - REHABILITATION THERAPY [None]
